FAERS Safety Report 5697862-7 (Version None)
Quarter: 2008Q2

REPORT INFORMATION
  Report Type: 
  Country: None (occurrence: None)
  Receive Date: 20080404
  Receipt Date: 20080404
  Transmission Date: 20081010
  Serious: Yes (Death, Hospitalization, Other)
  Sender: FDA-Public Use
  Company Number: None

PATIENT
  Age: 49 Year
  Sex: Male

DRUGS (3)
  1. SEPTRA [Suspect]
     Dates: start: 20050929, end: 20051009
  2. ZANTAC [Concomitant]
  3. IBUPROFEN [Concomitant]

REACTIONS (7)
  - DISEASE COMPLICATION [None]
  - DYSPEPSIA [None]
  - HEPATITIS VIRAL [None]
  - HYPERSENSITIVITY [None]
  - LIVER INJURY [None]
  - RASH [None]
  - SMOOTH MUSCLE ANTIBODY POSITIVE [None]
